APPROVED DRUG PRODUCT: FENTANYL-50
Active Ingredient: FENTANYL
Strength: 50MCG/HR
Dosage Form/Route: FILM, EXTENDED RELEASE;TRANSDERMAL
Application: A202097 | Product #003 | TE Code: AB
Applicant: KINDEVA DRUG DELIVERY LP
Approved: Nov 4, 2016 | RLD: No | RS: No | Type: RX